FAERS Safety Report 9639228 (Version 1)
Quarter: 2013Q4

REPORT INFORMATION
  Report Type: Spontaneous
  Country: GB (occurrence: GB)
  Receive Date: 20131022
  Receipt Date: 20131022
  Transmission Date: 20140711
  Serious: Yes (Death, Other)
  Sender: FDA-Public Use
  Company Number: GB-ROCHE-1290429

PATIENT
  Age: 69 Year
  Sex: Male
  Weight: 105 kg

DRUGS (10)
  1. ACTILYSE [Suspect]
     Indication: PULMONARY EMBOLISM
     Dosage: DOSE: 10 MG + 90 MG
     Route: 042
     Dates: start: 20130503
  2. FRAGMIN [Suspect]
     Indication: PROPHYLAXIS
     Dosage: 18000 UNITS
     Route: 058
     Dates: start: 20130501, end: 20130507
  3. ALFACALCIDOL [Concomitant]
     Route: 065
  4. DOXAZOSIN [Concomitant]
     Route: 065
  5. MYCOPHENOLATE MOFETIL [Concomitant]
     Route: 065
     Dates: start: 20130508
  6. NIFEDIPINE [Concomitant]
     Route: 065
     Dates: start: 20130502
  7. OMEPRAZOLE [Concomitant]
     Route: 065
     Dates: start: 20130508
  8. PREDNISOLONE [Concomitant]
     Route: 065
     Dates: start: 20130508
  9. SIMVASTATIN [Concomitant]
     Route: 065
     Dates: start: 20130502
  10. TACROLIMUS [Concomitant]
     Route: 065
     Dates: start: 20130508

REACTIONS (5)
  - Renal failure acute [Fatal]
  - Haemoglobin decreased [Fatal]
  - Peritoneal haemorrhage [Fatal]
  - Hypotension [Fatal]
  - Muscle haemorrhage [Fatal]
